FAERS Safety Report 12378492 (Version 1)
Quarter: 2016Q2

REPORT INFORMATION
  Report Type: Spontaneous
  Country: GB (occurrence: GB)
  Receive Date: 20160517
  Receipt Date: 20160517
  Transmission Date: 20160815
  Serious: Yes (Disabling, Other)
  Sender: FDA-Public Use
  Company Number: GB-TEVA-659175ACC

PATIENT
  Age: 63 Year
  Sex: Female
  Weight: 63.5 kg

DRUGS (15)
  1. COCODAMOL [Concomitant]
     Active Substance: ACETAMINOPHEN\CODEINE PHOSPHATE
  2. NAPROXEN. [Concomitant]
     Active Substance: NAPROXEN
  3. VITAMIN B COMPOUND [Concomitant]
  4. OMEGA-3 FISH OIL [Concomitant]
     Active Substance: FISH OIL\OMEGA-3 FATTY ACIDS
  5. PARACETAMOL [Concomitant]
     Active Substance: ACETAMINOPHEN
  6. COENZYME Q10 [Concomitant]
     Active Substance: UBIDECARENONE
  7. CALCIUM [Concomitant]
     Active Substance: CALCIUM
     Dates: end: 201601
  8. ACTONEL [Concomitant]
     Active Substance: RISEDRONATE SODIUM
     Dates: end: 201601
  9. GLUCOSAMINE WITH CHONDROITIN [Concomitant]
  10. IBUPROFEN. [Concomitant]
     Active Substance: IBUPROFEN
  11. VITAMIN D [Concomitant]
     Active Substance: CHOLECALCIFEROL
     Dates: end: 201601
  12. LETROZOLE. [Suspect]
     Active Substance: LETROZOLE
     Indication: BREAST CANCER
     Route: 048
     Dates: start: 201305, end: 201512
  13. PRAVASTATIN [Concomitant]
     Active Substance: PRAVASTATIN\PRAVASTATIN SODIUM
     Dates: end: 201601
  14. ANASTROZOLE. [Suspect]
     Active Substance: ANASTROZOLE
     Indication: ADJUVANT THERAPY
     Route: 048
     Dates: start: 201111
  15. ROSE HIP [Concomitant]

REACTIONS (6)
  - Musculoskeletal stiffness [Unknown]
  - Osteoarthritis [Not Recovered/Not Resolved]
  - Bone pain [Unknown]
  - Neuralgia [Unknown]
  - Arthralgia [Not Recovered/Not Resolved]
  - Myalgia [Unknown]

NARRATIVE: CASE EVENT DATE: 201211
